FAERS Safety Report 21023093 (Version 1)
Quarter: 2022Q2

REPORT INFORMATION
  Report Type: Spontaneous
  Country: US (occurrence: None)
  Receive Date: 20220629
  Receipt Date: 20220629
  Transmission Date: 20220721
  Serious: No
  Sender: FDA-Public Use
  Company Number: None

PATIENT
  Age: 71 Year
  Sex: Male
  Weight: 70.76 kg

DRUGS (1)
  1. ATORVASTATIN CALCIUM [Suspect]
     Active Substance: ATORVASTATIN CALCIUM
     Dosage: ONE-HALF TAB PM PO
     Route: 048
     Dates: start: 20210729, end: 20220411

REACTIONS (4)
  - Dizziness [None]
  - Gait disturbance [None]
  - Myalgia [None]
  - Rhabdomyolysis [None]

NARRATIVE: CASE EVENT DATE: 20220401
